FAERS Safety Report 22617554 (Version 1)
Quarter: 2023Q2

REPORT INFORMATION
  Report Type: Spontaneous
  Country: AU (occurrence: AU)
  Receive Date: 20230620
  Receipt Date: 20230620
  Transmission Date: 20230721
  Serious: Yes (Other)
  Sender: FDA-Public Use
  Company Number: AU-CHEPLA-2023007203

PATIENT
  Age: 22 Year
  Sex: Male

DRUGS (5)
  1. CLONAZEPAM [Suspect]
     Active Substance: CLONAZEPAM
     Indication: Hallucination
  2. CLONIDINE [Suspect]
     Active Substance: CLONIDINE
     Indication: Hallucination
  3. LAMOTRIGINE [Suspect]
     Active Substance: LAMOTRIGINE
     Indication: Hallucination
  4. LURASIDONE [Suspect]
     Active Substance: LURASIDONE
     Indication: Hallucination
  5. GALCANEZUMAB [Suspect]
     Active Substance: GALCANEZUMAB
     Indication: Hallucination

REACTIONS (2)
  - Suicide attempt [Unknown]
  - Product use in unapproved indication [Recovered/Resolved]
